FAERS Safety Report 22642507 (Version 6)
Quarter: 2023Q4

REPORT INFORMATION
  Report Type: Spontaneous
  Country: US (occurrence: US)
  Receive Date: 20230626
  Receipt Date: 20231127
  Transmission Date: 20240110
  Serious: Yes (Hospitalization, Other)
  Sender: FDA-Public Use
  Company Number: US-BEH-2023160289

PATIENT
  Age: 17 Year
  Sex: Male

DRUGS (4)
  1. IDELVION [Suspect]
     Active Substance: COAGULATION FACTOR IX RECOMBINANT HUMAN
     Indication: Factor IX deficiency
     Dosage: 4000 INTERNATIONAL UNIT, QW
     Route: 042
     Dates: start: 201606
  2. IDELVION [Suspect]
     Active Substance: COAGULATION FACTOR IX RECOMBINANT HUMAN
     Indication: Factor IX deficiency
     Dosage: 4000 INTERNATIONAL UNIT, QW
     Route: 042
     Dates: start: 201606
  3. IDELVION [Suspect]
     Active Substance: COAGULATION FACTOR IX RECOMBINANT HUMAN
     Dosage: 4000 INTERNATIONAL UNIT, QW
     Route: 042
     Dates: start: 202303
  4. IDELVION [Suspect]
     Active Substance: COAGULATION FACTOR IX RECOMBINANT HUMAN
     Dosage: 4000 INTERNATIONAL UNIT, QW
     Route: 042
     Dates: start: 202303

REACTIONS (8)
  - Wisdom teeth removal [Unknown]
  - Mouth haemorrhage [Unknown]
  - Mouth haemorrhage [Unknown]
  - Mouth haemorrhage [Unknown]
  - Mouth haemorrhage [Unknown]
  - Swelling face [Unknown]
  - Haemorrhage [Unknown]
  - Haemarthrosis [Recovered/Resolved]

NARRATIVE: CASE EVENT DATE: 20230607
